FAERS Safety Report 8015327-4 (Version None)
Quarter: 2011Q4

REPORT INFORMATION
  Report Type: 
  Country: None (occurrence: None)
  Receive Date: 20111230
  Receipt Date: 20111221
  Transmission Date: 20120403
  Serious: Yes (Other)
  Sender: FDA-Public Use
  Company Number: US-PERRIGO-11US010241

PATIENT
  Sex: Female
  Weight: 64.399 kg

DRUGS (6)
  1. WELCHOL [Concomitant]
     Indication: DYSPEPSIA
     Dosage: 625 MG, QD
     Route: 048
     Dates: start: 20050101
  2. NAPROXEN SODIUM [Suspect]
     Indication: TOOTHACHE
     Dosage: 220 MG, SINGLE
     Route: 048
     Dates: start: 20111029, end: 20111029
  3. ASPIRIN [Concomitant]
     Indication: PRODUCT USED FOR UNKNOWN INDICATION
     Dosage: 81 MG, UNKNOWN
     Route: 048
  4. MULTI-VITAMIN [Concomitant]
     Indication: PRODUCT USED FOR UNKNOWN INDICATION
     Dosage: UNKNOWN
     Route: 048
  5. WELLBUTRIN XL [Concomitant]
     Indication: PRODUCT USED FOR UNKNOWN INDICATION
     Dosage: 150 MG
     Route: 048
     Dates: start: 20070901
  6. NAPROXEN SODIUM [Suspect]
     Indication: NECK PAIN
     Dosage: 220 MG, SINGLE
     Route: 048
     Dates: start: 20111118, end: 20111118

REACTIONS (8)
  - GENERALISED ERYTHEMA [None]
  - SWELLING FACE [None]
  - PHARYNGEAL OEDEMA [None]
  - ANAPHYLACTIC REACTION [None]
  - PRURITUS [None]
  - LIP SWELLING [None]
  - URTICARIA [None]
  - OEDEMA PERIPHERAL [None]
